FAERS Safety Report 24352842 (Version 1)
Quarter: 2024Q3

REPORT INFORMATION
  Report Type: Report from Study
  Country: US (occurrence: US)
  Receive Date: 20240923
  Receipt Date: 20240923
  Transmission Date: 20241017
  Serious: No
  Sender: ROCHE
  Company Number: US-ROCHE-3471164

PATIENT
  Age: 71 Year
  Sex: Female

DRUGS (2)
  1. HERCEPTIN [Suspect]
     Active Substance: TRASTUZUMAB
     Indication: Ovarian cancer
     Dosage: 241.5MG FOR FIRST WEEK, 121.8 MG FOR THE FOLLOWING WEEK?EVERY THREE WEEKS LOADING DOSE 488 MG. THEN
     Route: 041
  2. PACLITAXEL [Concomitant]
     Active Substance: PACLITAXEL

REACTIONS (2)
  - Off label use [Unknown]
  - No adverse event [Unknown]
